FAERS Safety Report 4442126-2 (Version None)
Quarter: 2004Q3

REPORT INFORMATION
  Report Type: 
  Country: None (occurrence: None)
  Receive Date: 20040903
  Receipt Date: 20040721
  Transmission Date: 20050211
  Serious: Yes (Other)
  Sender: FDA-Public Use
  Company Number: 2004UW15342

PATIENT
  Age: 63 Year
  Sex: Male
  Weight: 73.9363 kg

DRUGS (4)
  1. CRESTOR [Suspect]
     Indication: BLOOD CHOLESTEROL
     Dosage: 10 MG QD PO
     Route: 048
     Dates: start: 20040401
  2. TOPROL-XL [Concomitant]
  3. ASPIRIN [Concomitant]
  4. MULTI-VITAMINS [Concomitant]

REACTIONS (3)
  - BACK PAIN [None]
  - BLOOD CHOLESTEROL INCREASED [None]
  - MYALGIA [None]
